FAERS Safety Report 5918721-8 (Version None)
Quarter: 2008Q4

REPORT INFORMATION
  Report Type: 
  Country: None (occurrence: None)
  Receive Date: 20081015
  Receipt Date: 20080630
  Transmission Date: 20090506
  Serious: No
  Sender: FDA-Public Use
  Company Number: US-ASTRAZENECA-2008UW13098

PATIENT
  Age: 65 Year
  Sex: Female
  Weight: 59 kg

DRUGS (7)
  1. SYMBICORT [Suspect]
     Indication: ASTHMA
     Route: 055
  2. SINGULAIR [Concomitant]
  3. EVISTA [Concomitant]
  4. QUINAPRIL [Concomitant]
  5. OSCAL [Concomitant]
  6. ZYRTEC [Concomitant]
  7. CENTRUM SILVER [Concomitant]

REACTIONS (4)
  - DYSPNOEA [None]
  - ILL-DEFINED DISORDER [None]
  - INSOMNIA [None]
  - WHEEZING [None]
